FAERS Safety Report 24362040 (Version 1)
Quarter: 2024Q3

REPORT INFORMATION
  Report Type: Spontaneous
  Country: CN (occurrence: CN)
  Receive Date: 20240925
  Receipt Date: 20240925
  Transmission Date: 20241017
  Serious: Yes (Life-Threatening)
  Sender: ALCON
  Company Number: CN-ALCON LABORATORIES-ALC2024CN004336

PATIENT
  Age: 61 Year
  Sex: Female

DRUGS (1)
  1. FLUORESCEIN SODIUM [Suspect]
     Active Substance: FLUORESCEIN SODIUM
     Indication: Angiogram retina
     Dosage: 5 ML, ONCE/SINGLE
     Route: 041
     Dates: start: 20231228, end: 20231228

REACTIONS (1)
  - Anaphylactic shock [Recovering/Resolving]

NARRATIVE: CASE EVENT DATE: 20231228
